FAERS Safety Report 5303570-4 (Version None)
Quarter: 2007Q2

REPORT INFORMATION
  Report Type: 
  Country: None (occurrence: None)
  Receive Date: 20070420
  Receipt Date: 20070411
  Transmission Date: 20071010
  Serious: Yes (Hospitalization)
  Sender: FDA-Public Use
  Company Number: BR-PFIZER INC-2007029225

PATIENT
  Sex: Male

DRUGS (2)
  1. CARDURA [Suspect]
     Indication: BENIGN PROSTATIC HYPERPLASIA
     Route: 048
  2. RIVOTRIL [Concomitant]
     Route: 048

REACTIONS (3)
  - ANAEMIA [None]
  - GLUCOSE TOLERANCE IMPAIRED [None]
  - HELICOBACTER INFECTION [None]
